FAERS Safety Report 25106571 (Version 2)
Quarter: 2025Q2

REPORT INFORMATION
  Report Type: Spontaneous
  Country: JP (occurrence: JP)
  Receive Date: 20250321
  Receipt Date: 20250409
  Transmission Date: 20250716
  Serious: Yes (Hospitalization)
  Sender: MERCK SHARP AND DOHME
  Company Number: JP-009507513-2260164

PATIENT
  Age: 91 Year
  Sex: Male

DRUGS (1)
  1. LAGEVRIO [Suspect]
     Active Substance: MOLNUPIRAVIR
     Indication: COVID-19 treatment
     Dosage: STRENGTH: 200 MG
     Route: 048

REACTIONS (4)
  - Respiratory disorder [Unknown]
  - Dysphagia [Unknown]
  - Product prescribing issue [Unknown]
  - Product use in unapproved indication [Unknown]
